FAERS Safety Report 4640426-4 (Version None)
Quarter: 2005Q2

REPORT INFORMATION
  Report Type: 
  Country: None (occurrence: None)
  Receive Date: 20050419
  Receipt Date: 20050407
  Transmission Date: 20051028
  Serious: Yes (Other)
  Sender: FDA-Public Use
  Company Number: 2005056019

PATIENT
  Age: 75 Year
  Sex: 0
  Weight: 81.6475 kg

DRUGS (9)
  1. ZOLOFT [Suspect]
     Indication: DEPRESSION
     Dosage: 50 MG (50 MG, 1 IN 1 D), ORAL
     Route: 048
  2. DETROL LA [Suspect]
     Indication: HYPERTONIC BLADDER
     Dosage: 4 MG (4 MG, 1 IN 1 D), ORAL
     Route: 048
     Dates: start: 20010101
  3. BETAXOLOL HYDROCHLORIDE (BETAXOLOL HYDROCHLORIDE) [Concomitant]
  4. MECLOZINE HYDROCHLORIDE (MECLOZINE HYDROCHLORIDE) [Concomitant]
  5. DONNATAL (ATROPINE SULFATE, HYOSCINE HYDROBROMIDE, HYOSCYAMINE SULFATE [Concomitant]
  6. RANITIDINE HYDROCHLORIDE [Concomitant]
  7. LOSARTAN POTASSIUM [Concomitant]
  8. METOPROLOL TARTRATE [Concomitant]
  9. AMLODIPINE BESYLATE [Concomitant]

REACTIONS (13)
  - ARTHRITIS [None]
  - BLADDER PAIN [None]
  - BLADDER PROLAPSE [None]
  - CHOLELITHIASIS [None]
  - CONSTIPATION [None]
  - DRUG INEFFECTIVE [None]
  - DRY MOUTH [None]
  - INTERVERTEBRAL DISC DEGENERATION [None]
  - MACULAR DEGENERATION [None]
  - NOCTURIA [None]
  - POST PROCEDURAL COMPLICATION [None]
  - URINARY INCONTINENCE [None]
  - VISUAL DISTURBANCE [None]
